FAERS Safety Report 23703154 (Version 1)
Quarter: 2024Q2

REPORT INFORMATION
  Report Type: Spontaneous
  Country: US (occurrence: None)
  Receive Date: 20240403
  Receipt Date: 20240403
  Transmission Date: 20240715
  Serious: No
  Sender: FDA-Public Use
  Company Number: None

PATIENT
  Age: 74 Year
  Sex: Male

DRUGS (1)
  1. LENALIDOMIDE [Suspect]
     Active Substance: LENALIDOMIDE
     Indication: Plasma cell myeloma
     Dosage: 5MG QD ORAL?
     Route: 048
     Dates: start: 20200211

REACTIONS (5)
  - Syncope [None]
  - Atrial fibrillation [None]
  - Electrocardiogram abnormal [None]
  - Acute kidney injury [None]
  - Chronic kidney disease [None]

NARRATIVE: CASE EVENT DATE: 20240322
